FAERS Safety Report 8174844-7 (Version None)
Quarter: 2012Q1

REPORT INFORMATION
  Report Type: 
  Country: None (occurrence: None)
  Receive Date: 20120229
  Receipt Date: 20110121
  Transmission Date: 20120608
  Serious: No
  Sender: FDA-Public Use
  Company Number: US-GLAXOSMITHKLINE-A0908039A

PATIENT
  Age: 58 Year
  Sex: Male

DRUGS (3)
  1. GLUCOTROL [Concomitant]
  2. PRANDIN [Concomitant]
  3. VALTREX [Suspect]
     Indication: HERPES ZOSTER
     Dosage: 1G THREE TIMES PER DAY
     Route: 048
     Dates: start: 20100117, end: 20100121

REACTIONS (5)
  - FALL [None]
  - SLOW SPEECH [None]
  - SPEECH DISORDER [None]
  - TREMOR [None]
  - BALANCE DISORDER [None]
